FAERS Safety Report 24531741 (Version 1)
Quarter: 2024Q4

REPORT INFORMATION
  Report Type: Spontaneous
  Country: CA (occurrence: CA)
  Receive Date: 20241022
  Receipt Date: 20241022
  Transmission Date: 20250115
  Serious: Yes (Other)
  Sender: JOHNSON AND JOHNSON
  Company Number: CA-BAYER-2024A147111

PATIENT
  Age: 62 Year
  Sex: Female

DRUGS (3)
  1. XARELTO [Suspect]
     Active Substance: RIVAROXABAN
     Indication: Deep vein thrombosis
     Dosage: 20 MG
     Route: 048
     Dates: end: 20240716
  2. HEPARIN [Concomitant]
     Active Substance: HEPARIN SODIUM
  3. APIXABAN [Concomitant]
     Active Substance: APIXABAN

REACTIONS (6)
  - Limb mass [Unknown]
  - Thrombosis [Unknown]
  - Malaise [Unknown]
  - Fatigue [Unknown]
  - Pain in extremity [Unknown]
  - Drug ineffective [Unknown]

NARRATIVE: CASE EVENT DATE: 20241015
